FAERS Safety Report 7590441-6 (Version None)
Quarter: 2011Q3

REPORT INFORMATION
  Report Type: 
  Country: None (occurrence: None)
  Receive Date: 20110705
  Receipt Date: 20091122
  Transmission Date: 20111222
  Serious: Yes (Death, Other)
  Sender: FDA-Public Use
  Company Number: US-BAYER-200940364NA

PATIENT
  Age: 78 Year
  Sex: Male
  Weight: 69 kg

DRUGS (20)
  1. WHOLE BLOOD [Concomitant]
     Dosage: 1150 ML, UNK
  2. ACETYLSALICYLIC ACID SRT [Concomitant]
     Dosage: 81 MG, UNK
     Route: 048
  3. INSULIN [Concomitant]
     Route: 042
  4. MILRINONE [Concomitant]
     Route: 042
  5. HEPARIN [Concomitant]
  6. HEPARIN [Concomitant]
     Route: 042
  7. PAPAVERINE [Concomitant]
     Route: 042
  8. TRASYLOL [Suspect]
     Indication: PRODUCT USED FOR UNKNOWN INDICATION
     Dosage: 1 ML, TESTDOSE, PUMP PRIME
     Route: 042
     Dates: start: 20050223
  9. TRASYLOL [Suspect]
     Indication: TRICUSPID VALVE REPAIR
  10. ALTACE [Concomitant]
     Dosage: 5 MG, DAILY
     Route: 048
     Dates: start: 20050209
  11. TOPROL-XL [Concomitant]
     Dosage: 25 MG, DAILY
     Route: 048
  12. CRYOPRECIPITATES [Concomitant]
     Dosage: 10 U, UNK
     Route: 042
     Dates: start: 20050223
  13. PLATELETS [Concomitant]
     Dosage: 2 U, UNK
     Route: 042
  14. RED BLOOD CELLS, CONCENTRATED [Concomitant]
     Dosage: 6 U, UNK
     Route: 042
  15. ARGATROBAN [Concomitant]
  16. CEFAZOLIN [Concomitant]
     Route: 042
  17. MIDAZOLAM HCL [Concomitant]
     Route: 042
  18. LIPITOR [Concomitant]
     Dosage: 20 MG, EVERY HR OF SLEEP
     Route: 048
     Dates: start: 20050221
  19. PROTAMINE SULFATE [Concomitant]
     Route: 042
  20. PLASMA [Concomitant]
     Dosage: 6 U, UNK
     Route: 042

REACTIONS (13)
  - UNEVALUABLE EVENT [None]
  - PAIN [None]
  - DEATH [None]
  - RENAL INJURY [None]
  - INJURY [None]
  - FEAR [None]
  - STRESS [None]
  - MULTI-ORGAN FAILURE [None]
  - ANXIETY [None]
  - ANHEDONIA [None]
  - RENAL IMPAIRMENT [None]
  - RENAL FAILURE [None]
  - EMOTIONAL DISTRESS [None]
